FAERS Safety Report 7422962-0 (Version None)
Quarter: 2011Q2

REPORT INFORMATION
  Report Type: 
  Country: None (occurrence: None)
  Receive Date: 20110419
  Receipt Date: 20110414
  Transmission Date: 20111010
  Serious: Yes (Other)
  Sender: FDA-Public Use
  Company Number: US-BRISTOL-MYERS SQUIBB COMPANY-14866842

PATIENT
  Age: 65 Year
  Sex: Female

DRUGS (1)
  1. SPRYCEL [Suspect]
     Indication: CHRONIC MYELOID LEUKAEMIA
     Route: 048
     Dates: start: 20070820

REACTIONS (8)
  - BLOOD PRESSURE INCREASED [None]
  - COUGH [None]
  - CHEST PAIN [None]
  - OXYGEN SATURATION DECREASED [None]
  - COGNITIVE DISORDER [None]
  - FATIGUE [None]
  - MAJOR DEPRESSION [None]
  - DIZZINESS [None]
